FAERS Safety Report 17610362 (Version 1)
Quarter: 2020Q2

REPORT INFORMATION
  Report Type: Spontaneous
  Country: LT (occurrence: LT)
  Receive Date: 20200401
  Receipt Date: 20200401
  Transmission Date: 20200713
  Serious: Yes (Life-Threatening, Hospitalization)
  Sender: FDA-Public Use
  Company Number: LT-ASTRAZENECA-2020SE44042

PATIENT
  Age: 62 Year
  Sex: Female
  Weight: 123 kg

DRUGS (4)
  1. APIDRA [Concomitant]
     Active Substance: INSULIN GLULISINE
     Indication: DIABETES MELLITUS
     Dosage: 20-30 V
     Route: 059
     Dates: start: 2012
  2. FORXIGA [Suspect]
     Active Substance: DAPAGLIFLOZIN
     Indication: DIABETES MELLITUS
     Route: 048
     Dates: start: 20200130, end: 20200207
  3. METFORMIN [Concomitant]
     Active Substance: METFORMIN HYDROCHLORIDE
     Indication: DIABETES MELLITUS
     Dosage: 1700.0MG UNKNOWN
     Route: 065
     Dates: start: 2006, end: 20200208
  4. INSULIN TOUJEO SOLOSTAR [Concomitant]
     Indication: DIABETES MELLITUS
     Dosage: 30-40 V
     Route: 059
     Dates: start: 2017

REACTIONS (2)
  - Pyrexia [Recovering/Resolving]
  - Perineal pain [Recovering/Resolving]

NARRATIVE: CASE EVENT DATE: 20200207
